FAERS Safety Report 6919600-X (Version None)
Quarter: 2010Q3

REPORT INFORMATION
  Report Type: 
  Country: None (occurrence: None)
  Receive Date: 20100811
  Receipt Date: 20100729
  Transmission Date: 20110219
  Serious: Yes (Hospitalization)
  Sender: FDA-Public Use
  Company Number: JP-MERCK-1008USA00299

PATIENT
  Age: 98 Year
  Sex: Female

DRUGS (9)
  1. JANUVIA [Suspect]
     Indication: DIABETES MELLITUS
     Route: 048
     Dates: start: 20100224, end: 20100331
  2. PEPCID RPD [Concomitant]
     Route: 048
  3. METHYCOBAL [Concomitant]
     Route: 048
  4. NITOROL-R [Concomitant]
     Route: 048
  5. ASPIRIN [Concomitant]
     Route: 048
  6. BLOPRESS [Concomitant]
     Indication: HYPERTENSION
     Route: 048
  7. NORVASC [Concomitant]
     Indication: HYPERTENSION
     Route: 048
  8. ALLOPURINOL [Concomitant]
     Route: 065
  9. GLIMICRON [Concomitant]
     Dosage: 80 MG AND 40 MG DAY AND NIGHT
     Route: 065

REACTIONS (1)
  - GASTROENTERITIS [None]
